FAERS Safety Report 25190614 (Version 1)
Quarter: 2025Q2

REPORT INFORMATION
  Report Type: Spontaneous
  Country: US (occurrence: US)
  Receive Date: 20250411
  Receipt Date: 20250411
  Transmission Date: 20250716
  Serious: Yes (Hospitalization)
  Sender: CORIUM
  Company Number: US-MIMS-CORIMC-6207

PATIENT
  Age: 8 Year
  Sex: Male

DRUGS (2)
  1. AZSTARYS [Interacting]
     Active Substance: DEXMETHYLPHENIDATE HYDROCHLORIDE\SERDEXMETHYLPHENIDATE CHLORIDE
     Indication: Product used for unknown indication
     Route: 065
  2. ABILIFY [Interacting]
     Active Substance: ARIPIPRAZOLE
     Indication: Product used for unknown indication
     Route: 065

REACTIONS (5)
  - Muscle rigidity [Unknown]
  - Pain in extremity [Unknown]
  - Myalgia [Unknown]
  - Headache [Unknown]
  - Drug interaction [Unknown]

NARRATIVE: CASE EVENT DATE: 20250301
